FAERS Safety Report 5640533-3 (Version None)
Quarter: 2008Q1

REPORT INFORMATION
  Report Type: 
  Country: None (occurrence: None)
  Receive Date: 20080227
  Receipt Date: 20080222
  Transmission Date: 20080703
  Serious: Yes (Hospitalization)
  Sender: FDA-Public Use
  Company Number: US-BRISTOL-MYERS SQUIBB COMPANY-14087316

PATIENT
  Age: 30 Year
  Sex: Female
  Weight: 49 kg

DRUGS (2)
  1. CISPLATIN [Suspect]
     Indication: ADENOSQUAMOUS CARCINOMA OF THE CERVIX
     Dosage: START DATE OF FIRST COURSE:21DE07
     Dates: start: 20080110, end: 20080117
  2. CETUXIMAB [Suspect]
     Indication: ADENOSQUAMOUS CARCINOMA OF THE CERVIX
     Dosage: START DATE OF FIRST COURSE:21DEC07
     Route: 042
     Dates: start: 20080110, end: 20080124

REACTIONS (4)
  - CONSTIPATION [None]
  - NAUSEA [None]
  - PAIN IN EXTREMITY [None]
  - VOMITING [None]
